FAERS Safety Report 11213444 (Version 1)
Quarter: 2015Q2

REPORT INFORMATION
  Report Type: Spontaneous
  Country: BE (occurrence: BE)
  Receive Date: 20150623
  Receipt Date: 20150623
  Transmission Date: 20150821
  Serious: Yes (Hospitalization)
  Sender: FDA-Public Use
  Company Number: BE-ECLAT PHARMACEUTICALS-2015ECL00007

PATIENT
  Age: 8 Year
  Sex: Male

DRUGS (2)
  1. PHENYLEPHRINE [Suspect]
     Active Substance: PHENYLEPHRINE\PHENYLEPHRINE HYDROCHLORIDE
     Dosage: 137.5 MG, UNK
  2. NAPHAZOLINE [Suspect]
     Active Substance: NAPHAZOLINE\NAPHAZOLINE HYDROCHLORIDE
     Dosage: 55 MG, UNK

REACTIONS (7)
  - Accidental exposure to product by child [Recovered/Resolved]
  - Poisoning [Recovered/Resolved]
  - Bradycardia [None]
  - Vomiting [None]
  - Photophobia [Recovered/Resolved]
  - Headache [None]
  - Pallor [None]
